FAERS Safety Report 20126464 (Version 1)
Quarter: 2021Q4

REPORT INFORMATION
  Report Type: Spontaneous
  Country: VI (occurrence: None)
  Receive Date: 20211129
  Receipt Date: 20211129
  Transmission Date: 20220303
  Serious: Yes (Other)
  Sender: FDA-Public Use
  Company Number: None

PATIENT
  Sex: Male
  Weight: 127.1 kg

DRUGS (1)
  1. SINGULAIR [Suspect]
     Active Substance: MONTELUKAST SODIUM
     Indication: Asthma

REACTIONS (16)
  - Headache [None]
  - Poor quality sleep [None]
  - Depression [None]
  - Anxiety [None]
  - Abdominal pain [None]
  - Nausea [None]
  - Motion sickness [None]
  - Fatigue [None]
  - Oropharyngeal pain [None]
  - Cough [None]
  - Dysphonia [None]
  - Ear pain [None]
  - Dizziness [None]
  - Weight increased [None]
  - Alopecia [None]
  - Hypertension [None]
